FAERS Safety Report 16919222 (Version 1)
Quarter: 2019Q4

REPORT INFORMATION
  Report Type: Spontaneous
  Country: US (occurrence: US)
  Receive Date: 20191014
  Receipt Date: 20191014
  Transmission Date: 20200122
  Serious: Yes (Hospitalization)
  Sender: FDA-Public Use
  Company Number: None

PATIENT
  Sex: Female

DRUGS (5)
  1. ASPIRIN. [Concomitant]
     Active Substance: ASPIRIN
     Dates: start: 20170504
  2. FLUOXETINE [Concomitant]
     Active Substance: FLUOXETINE HYDROCHLORIDE
     Dates: start: 20190719
  3. OCREVUS [Concomitant]
     Active Substance: OCRELIZUMAB
     Dates: start: 20190107
  4. DALFAMPRIDINE. [Suspect]
     Active Substance: DALFAMPRIDINE
     Indication: MULTIPLE SCLEROSIS
     Dosage: ?          OTHER FREQUENCY:EVERY TWELVE HOURS;?
     Route: 048
     Dates: start: 20181016
  5. BACLOFEN. [Concomitant]
     Active Substance: BACLOFEN
     Dates: start: 20170504

REACTIONS (4)
  - Fatigue [None]
  - Hip arthroplasty [None]
  - Arthralgia [None]
  - Depression [None]
